FAERS Safety Report 5055570-X (Version None)
Quarter: 2006Q3

REPORT INFORMATION
  Report Type: 
  Country: None (occurrence: None)
  Receive Date: 20060714
  Receipt Date: 20060707
  Transmission Date: 20061208
  Serious: Yes (Hospitalization)
  Sender: FDA-Public Use
  Company Number: 2006BI009660

PATIENT
  Age: 32 Year
  Sex: Male
  Weight: 74.8435 kg

DRUGS (6)
  1. AVONEX [Suspect]
     Indication: MULTIPLE SCLEROSIS
     Dosage: 30 UG; QW; IM
     Route: 030
     Dates: start: 20060301
  2. DEPAKOTE [Concomitant]
  3. VALIUM [Concomitant]
  4. ZOMIG [Concomitant]
  5. TRAMADOL HCL [Concomitant]
  6. CORGARD [Concomitant]

REACTIONS (8)
  - ANXIETY [None]
  - BLADDER DISORDER [None]
  - DEPRESSION [None]
  - DYSPHAGIA [None]
  - DYSPNOEA [None]
  - HYPOAESTHESIA [None]
  - SPEECH DISORDER [None]
  - VISUAL DISTURBANCE [None]
